FAERS Safety Report 4279894-9 (Version None)
Quarter: 2004Q1

REPORT INFORMATION
  Report Type: 
  Country: None (occurrence: None)
  Receive Date: 20040122
  Receipt Date: 20040112
  Transmission Date: 20041129
  Serious: Yes (Hospitalization)
  Sender: FDA-Public Use
  Company Number: GB-JNJFOC-20040103046

PATIENT
  Sex: Male

DRUGS (1)
  1. REOPRO [Suspect]
     Indication: DRUG USE FOR UNKNOWN INDICATION
     Dosage: 2 IN 1 TOTAL, INTRAVENOUS BOLUS
     Route: 040
     Dates: start: 20040101

REACTIONS (3)
  - CARDIAC TAMPONADE [None]
  - MEDICATION ERROR [None]
  - OVERDOSE [None]
